FAERS Safety Report 11881118 (Version 1)
Quarter: 2015Q4

REPORT INFORMATION
  Report Type: Spontaneous
  Country: US (occurrence: US)
  Receive Date: 20151230
  Receipt Date: 20151230
  Transmission Date: 20160305
  Serious: No
  Sender: FDA-Public Use
  Company Number: US-009507513-1512USA009243

PATIENT
  Age: 37 Year
  Sex: Female
  Weight: 141.4 kg

DRUGS (1)
  1. NEXPLANON [Suspect]
     Active Substance: ETONOGESTREL
     Indication: MENORRHAGIA
     Dosage: 1 ROD EVERY 3 YEARS
     Route: 059
     Dates: start: 20150916

REACTIONS (2)
  - Erythema nodosum [Not Recovered/Not Resolved]
  - Product use issue [Unknown]

NARRATIVE: CASE EVENT DATE: 2015
